FAERS Safety Report 8732374 (Version 3)
Quarter: 2012Q4

REPORT INFORMATION
  Report Type: 
  Country: JP (occurrence: JP)
  Receive Date: 20120820
  Receipt Date: 20120912
  Transmission Date: 20130627
  Serious: Yes (Other)
  Sender: FDA-Public Use
  Company Number: JP-GLAXOSMITHKLINE-B0823412A

PATIENT
  Age: 72 Year
  Sex: Female
  Weight: 43 kg

DRUGS (17)
  1. ZANTAC [Suspect]
     Indication: PREMEDICATION
     Dosage: 50MG Per day
     Route: 042
     Dates: start: 20120710, end: 20120710
  2. ZANTAC [Suspect]
     Indication: PREMEDICATION
     Dosage: 50MG Per day
     Route: 042
     Dates: start: 20120731, end: 20120731
  3. ZANTAC [Suspect]
     Indication: PREMEDICATION
     Dosage: 50MG Per day
     Route: 042
     Dates: start: 20120814, end: 20120814
  4. CARBOPLATIN [Suspect]
     Indication: UTERINE CANCER
     Route: 042
     Dates: start: 20120710, end: 20120710
  5. CARBOPLATIN [Suspect]
     Indication: UTERINE CANCER
     Route: 042
     Dates: start: 20120731, end: 20120731
  6. ISOTONIC SODIUM CHLORIDE SOLUTION [Concomitant]
     Indication: PREMEDICATION
     Dosage: 100ML Per day
     Route: 042
     Dates: start: 20120710, end: 20120710
  7. ISOTONIC SODIUM CHLORIDE SOLUTION [Concomitant]
     Indication: PREMEDICATION
     Dosage: 100ML Per day
     Route: 042
     Dates: start: 20120731, end: 20120731
  8. ISOTONIC SODIUM CHLORIDE SOLUTION [Concomitant]
     Indication: PREMEDICATION
     Dosage: 100ML Per day
     Route: 042
     Dates: start: 20120814, end: 20120814
  9. DECADRON [Concomitant]
     Indication: PREMEDICATION
     Dosage: 19.8MG Per day
     Route: 042
     Dates: start: 20120710, end: 20120710
  10. DECADRON [Concomitant]
     Indication: PREMEDICATION
     Dosage: 19.8MG Per day
     Route: 042
     Dates: start: 20120731, end: 20120731
  11. DECADRON [Concomitant]
     Indication: PREMEDICATION
     Dosage: 6.6MG Per day
     Route: 042
     Dates: start: 20120814, end: 20120814
  12. PACLITAXEL [Concomitant]
     Indication: UTERINE CANCER
     Route: 042
     Dates: start: 20120731, end: 20120731
  13. VENA [Concomitant]
     Route: 048
  14. NASEA [Concomitant]
     Route: 048
  15. BRONUCK [Concomitant]
     Route: 031
  16. TAXOL [Concomitant]
     Route: 042
  17. GRANISETRON HYDROCHLORIDE [Concomitant]
     Route: 065

REACTIONS (14)
  - Anaphylactic shock [Recovered/Resolved]
  - Dyspnoea [Recovering/Resolving]
  - Nausea [Recovering/Resolving]
  - Blood pressure decreased [Recovering/Resolving]
  - Radial pulse abnormal [Recovering/Resolving]
  - Nausea [Recovered/Resolved]
  - Dyspnoea [Recovered/Resolved]
  - Dyspnoea [Unknown]
  - Hypersensitivity [Unknown]
  - Depressed level of consciousness [Recovering/Resolving]
  - Nausea [Recovered/Resolved]
  - Vomiting [Recovered/Resolved]
  - Diarrhoea [Recovered/Resolved]
  - Hyperhidrosis [Recovered/Resolved]
